FAERS Safety Report 5034081-1 (Version None)
Quarter: 2006Q2

REPORT INFORMATION
  Report Type: 
  Country: None (occurrence: None)
  Receive Date: 20060621
  Receipt Date: 20060605
  Transmission Date: 20061013
  Serious: Yes (Death, Other)
  Sender: FDA-Public Use
  Company Number: US200606001311

PATIENT
  Sex: Female

DRUGS (2)
  1. GEMZAR [Suspect]
     Indication: BREAST CANCER METASTATIC
     Dates: start: 20051101
  2. HERCEPTIN [Concomitant]

REACTIONS (2)
  - PULMONARY EMBOLISM [None]
  - PULMONARY TOXICITY [None]
